FAERS Safety Report 25209867 (Version 2)
Quarter: 2025Q3

REPORT INFORMATION
  Report Type: Report from Study
  Country: US (occurrence: US)
  Receive Date: 20250417
  Receipt Date: 20250721
  Transmission Date: 20251021
  Serious: Yes (Other)
  Sender: TAKEDA
  Company Number: US-TAKEDA-2025TUS034612

PATIENT
  Age: 72 Year
  Sex: Female

DRUGS (1)
  1. VEDOLIZUMAB [Suspect]
     Active Substance: VEDOLIZUMAB
     Indication: Crohn^s disease

REACTIONS (9)
  - Crohn^s disease [Not Recovered/Not Resolved]
  - Stress [Not Recovered/Not Resolved]
  - Depressed mood [Not Recovered/Not Resolved]
  - Anxiety [Not Recovered/Not Resolved]
  - Blood test abnormal [Unknown]
  - Abdominal pain upper [Recovered/Resolved]
  - Illness [Recovered/Resolved]
  - Therapeutic reaction time decreased [Unknown]
  - Fatigue [Not Recovered/Not Resolved]

NARRATIVE: CASE EVENT DATE: 20250331
